FAERS Safety Report 25980026 (Version 1)
Quarter: 2025Q4

REPORT INFORMATION
  Report Type: Spontaneous
  Country: CA (occurrence: CA)
  Receive Date: 20251030
  Receipt Date: 20251030
  Transmission Date: 20260118
  Serious: Yes (Other)
  Sender: INCYTE
  Company Number: CA-EVENT-004788

PATIENT
  Age: 68 Year

DRUGS (2)
  1. PEMAZYRE [Suspect]
     Active Substance: PEMIGATINIB
     Indication: Small intestine carcinoma metastatic
     Dosage: 13.5 MILLIGRAM (14 DAYS ON AND 7 DAYS OFF)
  2. PEMAZYRE [Suspect]
     Active Substance: PEMIGATINIB
     Dosage: 9 MILLIGRAM (14 DAYS ON AND 7 DAYS OFF)

REACTIONS (2)
  - Retinopathy [Unknown]
  - Off label use [Unknown]
